FAERS Safety Report 23645529 (Version 2)
Quarter: 2024Q1

REPORT INFORMATION
  Report Type: Spontaneous
  Country: CN (occurrence: CN)
  Receive Date: 20240319
  Receipt Date: 20240320
  Transmission Date: 20240410
  Serious: Yes (Other)
  Sender: FDA-Public Use
  Company Number: CN-JNJFOC-20240340102

PATIENT
  Age: 11 Year
  Sex: Male
  Weight: 36.5 kg

DRUGS (1)
  1. CHILDRENS MOTRIN [Suspect]
     Active Substance: IBUPROFEN
     Indication: Pyrexia
     Route: 048
     Dates: start: 20240305, end: 20240305

REACTIONS (11)
  - Upper respiratory tract congestion [Unknown]
  - Oropharyngeal pain [Unknown]
  - Chest discomfort [Recovering/Resolving]
  - Tachypnoea [Recovering/Resolving]
  - Productive cough [Unknown]
  - Respiratory rate increased [Unknown]
  - Tonsillar hypertrophy [Unknown]
  - Breath sounds abnormal [Unknown]
  - Feeling hot [Unknown]
  - Wheezing [Unknown]
  - Drug hypersensitivity [Not Recovered/Not Resolved]

NARRATIVE: CASE EVENT DATE: 20240305
